FAERS Safety Report 7845680-3 (Version None)
Quarter: 2011Q4

REPORT INFORMATION
  Report Type: 
  Country: None (occurrence: None)
  Receive Date: 20111025
  Receipt Date: 20111022
  Transmission Date: 20120403
  Serious: No
  Sender: FDA-Public Use
  Company Number: US-TEVA-306360USA

PATIENT
  Sex: Female

DRUGS (3)
  1. HYDROCODONE BITARTRATE [Concomitant]
     Indication: BACK PAIN
     Dosage: 30 MILLIGRAM;
     Route: 048
     Dates: start: 20110901
  2. DEPO-PROVERA [Concomitant]
     Indication: CONTRACEPTION
     Dates: start: 20111018
  3. PLAN B ONE-STEP [Suspect]
     Indication: POST COITAL CONTRACEPTION
     Dosage: 1.5 MILLIGRAM;
     Route: 048
     Dates: start: 20111021, end: 20111021

REACTIONS (1)
  - PELVIC PAIN [None]
